FAERS Safety Report 6263667-1 (Version None)
Quarter: 2009Q3

REPORT INFORMATION
  Report Type: 
  Country: None (occurrence: None)
  Receive Date: 20090710
  Receipt Date: 20090702
  Transmission Date: 20100115
  Serious: Yes (Other)
  Sender: FDA-Public Use
  Company Number: US-ELI_LILLY_AND_COMPANY-US200907000522

PATIENT
  Sex: Male

DRUGS (1)
  1. FORTEO [Suspect]
     Dosage: UNK, UNK
     Dates: start: 20090101, end: 20090601

REACTIONS (6)
  - ASTHENIA [None]
  - CHEST PAIN [None]
  - FATIGUE [None]
  - HYPERHIDROSIS [None]
  - INSOMNIA [None]
  - THROMBOSIS [None]
